FAERS Safety Report 8961121 (Version 1)
Quarter: 2012Q4

REPORT INFORMATION
  Report Type: 
  Country: US (occurrence: US)
  Receive Date: 20121212
  Receipt Date: 20121212
  Transmission Date: 20130627
  Serious: Yes (Life-Threatening)
  Sender: FDA-Public Use
  Company Number: US-GLAXOSMITHKLINE-A1001299A

PATIENT
  Age: 56 Year
  Sex: Female
  Weight: 101 kg

DRUGS (8)
  1. FLOLAN [Suspect]
     Indication: PULMONARY ARTERIAL HYPERTENSION
     Dosage: 2NG Continuous
     Route: 042
     Dates: start: 20121114, end: 20121114
  2. DOBUTAMINE [Concomitant]
     Route: 042
  3. DOPAMINE [Concomitant]
     Route: 042
  4. INSULIN [Concomitant]
     Route: 042
  5. AMINOCAPROIC ACID [Concomitant]
     Route: 042
  6. VANCOMYCIN [Concomitant]
     Dosage: 1G Twice per day
     Route: 042
  7. FLUCONAZOLE [Concomitant]
     Dosage: 400MG Per day
     Route: 042
  8. EPOPROSTENOL [Concomitant]
     Indication: PRODUCT USED FOR UNKNOWN INDICATION
     Route: 055

REACTIONS (3)
  - Blood pressure decreased [Recovered/Resolved]
  - Hypotension [Recovered/Resolved]
  - Cardiac disorder [Recovered/Resolved]
